FAERS Safety Report 6052245-5 (Version None)
Quarter: 2009Q1

REPORT INFORMATION
  Report Type: 
  Country: None (occurrence: None)
  Receive Date: 20090121
  Receipt Date: 20090115
  Transmission Date: 20090719
  Serious: Yes (Death, Disabling, Other)
  Sender: FDA-Public Use
  Company Number: 2008JP003282

PATIENT
  Age: 59 Year
  Sex: Female
  Weight: 43 kg

DRUGS (21)
  1. TACROLIMUS [Suspect]
     Indication: LUPUS NEPHRITIS
     Dosage: 3 MG, ORAL
     Route: 048
     Dates: start: 20071003, end: 20071121
  2. TACROLIMUS [Suspect]
     Indication: LUPUS NEPHRITIS
     Dosage: 3 MG, ORAL
     Route: 048
     Dates: start: 20071203, end: 20071224
  3. TACROLIMUS [Suspect]
     Indication: LUPUS NEPHRITIS
     Dosage: 3 MG, ORAL
     Route: 048
     Dates: start: 20080205, end: 20080716
  4. WARFARIN SODIUM [Suspect]
     Indication: LUPUS NEPHRITIS
     Dosage: 1.75 MG, ORAL
     Route: 048
     Dates: end: 20071121
  5. PAXIL [Suspect]
     Dosage: 20 MG, ORAL; 10 MG, ORAL
     Route: 048
     Dates: end: 20071121
  6. PAXIL [Suspect]
     Dosage: 20 MG, ORAL; 10 MG, ORAL
     Route: 048
     Dates: start: 20080415, end: 20080716
  7. PREDNISOLONE [Concomitant]
  8. AMLODIN (AMLODIPINE BESILATE) PER ORAL NOS [Concomitant]
  9. ACECOL (TEMOCAPRIL HYDROCHLORIDE) PER ORAL NOS [Concomitant]
  10. MICARDIS [Concomitant]
  11. LIVALO (ITAVASTATIN CALCIUM) PER ORAL NOS [Concomitant]
  12. LASIX (FUROSEMIDE) PER ORAL NOS [Concomitant]
  13. PROMAC (POLAPREZINC) PER ORAL NOS [Concomitant]
  14. DIOVAN (VALSARTAN) FORMULATION UNKNOWN [Concomitant]
  15. TAKEPRON (LANSOPRAZOLE) PER ORAL NOS [Concomitant]
  16. OLMETEC (OLMESARTAN MEDOXOMIL) FORMULATION UNKNOWN [Concomitant]
  17. BAYASPIRIN PER ORAL NOS [Concomitant]
  18. ARTIST (CARVEDILOL) PER ORAL NOS [Concomitant]
  19. PRIMPERAN (METOCLOPRAMIDE) PER ORAL NOS [Concomitant]
  20. GASMOTIN (MOSAPRIDE CITRATE) PER ORAL NOS [Concomitant]
  21. MAGNESIUM OXIDE (MAGNESIUM OXIDE) PER ORAL NOS [Concomitant]

REACTIONS (14)
  - ANOREXIA [None]
  - BEDRIDDEN [None]
  - CEREBRAL HAEMORRHAGE [None]
  - CONSTIPATION [None]
  - DEHYDRATION [None]
  - HAEMOLYTIC ANAEMIA [None]
  - HEMIANOPIA [None]
  - HEPATIC FUNCTION ABNORMAL [None]
  - HYPOPHAGIA [None]
  - MIXED CONNECTIVE TISSUE DISEASE [None]
  - PANCYTOPENIA [None]
  - PNEUMONIA [None]
  - PROTEINURIA [None]
  - SYSTEMIC SCLEROSIS [None]
